FAERS Safety Report 15905555 (Version 1)
Quarter: 2019Q1

REPORT INFORMATION
  Report Type: Spontaneous
  Country: US (occurrence: US)
  Receive Date: 20190204
  Receipt Date: 20190204
  Transmission Date: 20190417
  Serious: No
  Sender: FDA-Public Use
  Company Number: US-MYLANLABS-2019M1004401

PATIENT
  Sex: Female

DRUGS (1)
  1. ETHYNODIOL DIACETATE AND ETHINYL ESTRADIOL TABLETS USP [Suspect]
     Active Substance: ETHINYL ESTRADIOL\ETHYNODIOL DIACETATE
     Indication: CONTRACEPTION

REACTIONS (4)
  - Weight decreased [Unknown]
  - Depression [Unknown]
  - Anxiety [Unknown]
  - Metrorrhagia [Unknown]
